FAERS Safety Report 7861979-9 (Version None)
Quarter: 2011Q4

REPORT INFORMATION
  Report Type: 
  Country: None (occurrence: None)
  Receive Date: 20111027
  Receipt Date: 20111014
  Transmission Date: 20120403
  Serious: Yes (Hospitalization)
  Sender: FDA-Public Use
  Company Number: IT-NOVEN-11IT003445

PATIENT
  Sex: Female

DRUGS (1)
  1. PAROXETINE HCL [Suspect]
     Indication: DEPRESSION
     Dosage: 6 DF (DROPS), DAILY
     Route: 048
     Dates: start: 20110701, end: 20110721

REACTIONS (2)
  - BALANCE DISORDER [None]
  - HYPONATRAEMIA [None]
